FAERS Safety Report 24593747 (Version 1)
Quarter: 2024Q4

REPORT INFORMATION
  Report Type: Spontaneous
  Country: US (occurrence: None)
  Receive Date: 20241108
  Receipt Date: 20241108
  Transmission Date: 20250115
  Serious: Yes (Other)
  Sender: Public
  Company Number: None

PATIENT
  Age: 47 Year
  Sex: Female
  Weight: 90 kg

DRUGS (2)
  1. TIGER BALM [Suspect]
     Active Substance: CAMPHOR (SYNTHETIC)\CAPSICUM OLEORESIN\MENTHOL\METHYL SALICYLATE
     Indication: Back injury
     Dosage: 5 PATCH (ES) AS NEEDED TRANSDERMAL
     Route: 062
     Dates: start: 20241107, end: 20241107
  2. pain patches (OTC) [Concomitant]

REACTIONS (8)
  - Discomfort [None]
  - Burning sensation [None]
  - Tremor [None]
  - Chills [None]
  - Blister [None]
  - Burns second degree [None]
  - Burns third degree [None]
  - Inadequate analgesia [None]

NARRATIVE: CASE EVENT DATE: 20241107
